FAERS Safety Report 8544408-1 (Version None)
Quarter: 2012Q3

REPORT INFORMATION
  Report Type: 
  Country: None (occurrence: None)
  Receive Date: 20120727
  Receipt Date: 20120725
  Transmission Date: 20120928
  Serious: Yes (Other)
  Sender: FDA-Public Use
  Company Number: US-PFIZER INC-2012180419

PATIENT
  Sex: Male
  Weight: 87 kg

DRUGS (2)
  1. LYRICA [Suspect]
     Indication: PAIN
     Dosage: 50 MG, 2X/DAY
     Route: 048
     Dates: start: 20120418, end: 20120401
  2. LYRICA [Suspect]
     Indication: MUSCLE SPASMS
     Dosage: UNK
     Route: 048
     Dates: start: 20120401, end: 20120423

REACTIONS (10)
  - PAIN [None]
  - PROSTATE INFECTION [None]
  - FAECAL INCONTINENCE [None]
  - NAUSEA [None]
  - GAIT DISTURBANCE [None]
  - WEIGHT INCREASED [None]
  - WEIGHT DECREASED [None]
  - DIARRHOEA [None]
  - MUSCLE SPASMS [None]
  - DIZZINESS [None]
